FAERS Safety Report 6977982-7 (Version None)
Quarter: 2010Q3

REPORT INFORMATION
  Report Type: 
  Country: None (occurrence: None)
  Receive Date: 20100913
  Receipt Date: 20100830
  Transmission Date: 20110219
  Serious: Yes (Hospitalization)
  Sender: FDA-Public Use
  Company Number: US-RANBAXY-2010RR-38009

PATIENT
  Sex: Female

DRUGS (3)
  1. CIPROFLOXACIN [Suspect]
     Indication: PRODUCT USED FOR UNKNOWN INDICATION
     Dosage: 500 MG, BID
     Route: 065
  2. LEVAQUIN [Suspect]
     Indication: UPPER RESPIRATORY TRACT INFECTION
     Dosage: 500 MG, UNK
     Route: 048
     Dates: start: 20070802
  3. LEVAQUIN [Suspect]
     Indication: EAR INFECTION
     Dosage: 750 MG, UNK
     Dates: start: 20080125

REACTIONS (4)
  - LIGAMENT RUPTURE [None]
  - MUSCLE RUPTURE [None]
  - POST-TRAUMATIC STRESS DISORDER [None]
  - TENDON RUPTURE [None]
